FAERS Safety Report 8934655 (Version 1)
Quarter: 2012Q4

REPORT INFORMATION
  Report Type: 
  Country: JP (occurrence: JP)
  Receive Date: 20121129
  Receipt Date: 20121129
  Transmission Date: 20130627
  Serious: Yes (Other)
  Sender: FDA-Public Use
  Company Number: JP-TEVA-372495USA

PATIENT
  Age: 56 Year
  Sex: Male

DRUGS (2)
  1. TREANDA [Suspect]
     Indication: B-CELL LYMPHOMA
     Dosage: Cyclical
     Route: 042
     Dates: start: 20111130, end: 20120425
  2. RITUXIMAB [Concomitant]
     Indication: B-CELL LYMPHOMA
     Dates: start: 20111129, end: 20120423

REACTIONS (10)
  - Vasculitis [Unknown]
  - Lymphocyte count decreased [Unknown]
  - Nausea [Unknown]
  - Decreased appetite [Unknown]
  - Rash [Unknown]
  - Dysgeusia [Unknown]
  - Fatigue [Unknown]
  - Pigmentation disorder [Unknown]
  - Neutrophil count decreased [Unknown]
  - Pruritus [Unknown]
